FAERS Safety Report 4800138-0 (Version None)
Quarter: 2005Q4

REPORT INFORMATION
  Report Type: 
  Country: None (occurrence: None)
  Receive Date: 20051017
  Receipt Date: 20051006
  Transmission Date: 20060501
  Serious: Yes (Hospitalization)
  Sender: FDA-Public Use
  Company Number: FR-GLAXOSMITHKLINE-B0396961A

PATIENT
  Age: 68 Year
  Sex: Female
  Weight: 60 kg

DRUGS (11)
  1. AUGMENTIN '125' [Suspect]
     Indication: ABSCESS
     Dosage: 1G TWICE PER DAY
     Route: 048
     Dates: start: 20050809, end: 20050809
  2. AUGMENTIN '125' [Suspect]
     Indication: ABSCESS
     Dosage: 1G THREE TIMES PER DAY
     Route: 042
     Dates: start: 20050804, end: 20050808
  3. GINKOR [Concomitant]
     Route: 065
  4. GENTAMICIN [Concomitant]
     Indication: ABSCESS
     Dosage: 160MG PER DAY
     Route: 042
     Dates: start: 20050804, end: 20050809
  5. ZANIDIP [Concomitant]
     Dosage: 1UNIT PER DAY
     Route: 065
  6. PERFALGAN [Concomitant]
     Route: 042
     Dates: start: 20050801, end: 20050805
  7. PROFENID [Concomitant]
     Route: 065
     Dates: start: 20050801
  8. MORPHINE SULFATE [Concomitant]
     Route: 065
     Dates: start: 20050801
  9. GENERAL ANAESTHETIC UNKNOWN DRUGS [Concomitant]
     Route: 065
     Dates: start: 20050728, end: 20050728
  10. GENERAL ANAESTHETIC UNKNOWN DRUGS [Concomitant]
     Route: 065
     Dates: start: 20050804, end: 20050804
  11. DAFALGAN [Concomitant]
     Route: 048
     Dates: start: 20050805, end: 20050809

REACTIONS (5)
  - ALANINE AMINOTRANSFERASE INCREASED [None]
  - ASPARTATE AMINOTRANSFERASE INCREASED [None]
  - BLOOD ALKALINE PHOSPHATASE INCREASED [None]
  - GAMMA-GLUTAMYLTRANSFERASE INCREASED [None]
  - HEPATIC ENZYME INCREASED [None]
